FAERS Safety Report 8594561-9 (Version None)
Quarter: 2012Q3

REPORT INFORMATION
  Report Type: 
  Country: None (occurrence: None)
  Receive Date: 20120815
  Receipt Date: 20120806
  Transmission Date: 20120928
  Serious: Yes (Other)
  Sender: FDA-Public Use
  Company Number: US-ELI_LILLY_AND_COMPANY-US201205001925

PATIENT
  Sex: Female

DRUGS (8)
  1. TOPROL-XL [Concomitant]
     Indication: HYPERTENSION
     Dosage: UNK, BID
  2. PREDNISONE TAB [Concomitant]
     Indication: SYSTEMIC LUPUS ERYTHEMATOSUS
     Dosage: 1 DF, QD
  3. LISINOPRIL                              /USA/ [Concomitant]
     Indication: HYPERTENSION
     Dosage: 1 DF, QD
  4. CYMBALTA [Suspect]
     Indication: OSTEOARTHRITIS
     Dosage: 30 MG, QD
  5. OMEPRAZOLE [Concomitant]
     Indication: GASTROOESOPHAGEAL REFLUX DISEASE
     Dosage: UNK, UNKNOWN
     Route: 065
  6. METHOTREXATE [Concomitant]
     Indication: RHEUMATOID ARTHRITIS
     Dosage: 4 DF, WEEKLY (1/W)
  7. FOSAMAX [Concomitant]
     Indication: OSTEOPOROSIS
     Dosage: UNK, WEEKLY (1/W)
  8. PREDNISONE TAB [Concomitant]
     Dosage: 2 DF, QD

REACTIONS (22)
  - EYE PRURITUS [None]
  - SOMNOLENCE [None]
  - ECZEMA [None]
  - BACK PAIN [None]
  - DRUG HYPERSENSITIVITY [None]
  - NAUSEA [None]
  - PRURITUS [None]
  - EYE IRRITATION [None]
  - HYPERSOMNIA [None]
  - STOMATITIS [None]
  - ARTHRALGIA [None]
  - MUSCLE SPASMS [None]
  - MUSCULOSKELETAL STIFFNESS [None]
  - MYALGIA [None]
  - EXFOLIATIVE RASH [None]
  - COUGH [None]
  - DIZZINESS [None]
  - DYSPEPSIA [None]
  - FEELING HOT [None]
  - ABDOMINAL PAIN UPPER [None]
  - DYSPNOEA [None]
  - JOINT SWELLING [None]
